FAERS Safety Report 14948973 (Version 1)
Quarter: 2018Q2

REPORT INFORMATION
  Report Type: Spontaneous
  Country: CH (occurrence: CH)
  Receive Date: 20180529
  Receipt Date: 20180529
  Transmission Date: 20180711
  Serious: Yes (Death, Hospitalization, Other)
  Sender: FDA-Public Use
  Company Number: CH-GLAXOSMITHKLINE-CH2018092735

PATIENT
  Age: 73 Year
  Sex: Male

DRUGS (25)
  1. BACTRIM [Suspect]
     Active Substance: SULFAMETHOXAZOLE\TRIMETHOPRIM
     Indication: PNEUMOCYSTIS JIROVECII INFECTION
     Dosage: 5.5 DF, QID
     Route: 051
     Dates: start: 20180404, end: 20180409
  2. PIPERACILLIN AND TAZOBACTAM [Concomitant]
     Active Substance: PIPERACILLIN SODIUM\TAZOBACTAM SODIUM
     Indication: PRODUCT USED FOR UNKNOWN INDICATION
     Dosage: 4.5 G, TID
     Route: 051
     Dates: start: 20180407, end: 20180415
  3. ACIDUM FOLICUM [Concomitant]
     Active Substance: FOLIC ACID
     Indication: PRODUCT USED FOR UNKNOWN INDICATION
     Dosage: 5 MG, QD
     Route: 065
     Dates: start: 20180411
  4. HEPARIN SODIUM. [Suspect]
     Active Substance: HEPARIN SODIUM
     Indication: PROPHYLAXIS
     Dosage: 10800 IU, UNK
     Route: 051
     Dates: start: 20180418, end: 20180419
  5. SPIRICORT [Suspect]
     Active Substance: PREDNISOLONE
     Indication: ALVEOLITIS ALLERGIC
     Dosage: 1 DF, UNK
     Route: 048
     Dates: end: 2018
  6. ADRENALIN [Concomitant]
     Active Substance: EPINEPHRINE
     Indication: PRODUCT USED FOR UNKNOWN INDICATION
     Dosage: 1 DF, QD
     Route: 065
     Dates: start: 201804, end: 20180418
  7. NORADRENALIN [Concomitant]
     Active Substance: NOREPINEPHRINE\NOREPINEPHRINE BITARTRATE
     Indication: PRODUCT USED FOR UNKNOWN INDICATION
     Dosage: 1 DF, QD
     Route: 065
     Dates: start: 20180418, end: 20180419
  8. ADRENALIN [Suspect]
     Active Substance: EPINEPHRINE
     Indication: MEDICATION ERROR
     Dosage: UNK
     Route: 051
     Dates: start: 20180419, end: 20180419
  9. PANTOPRAZOLE [Concomitant]
     Active Substance: PANTOPRAZOLE
     Indication: PRODUCT USED FOR UNKNOWN INDICATION
     Dosage: 40 MG, QD
     Route: 065
     Dates: start: 201803, end: 20180407
  10. CALCIMAGON [Concomitant]
     Active Substance: CALCIUM
     Indication: PRODUCT USED FOR UNKNOWN INDICATION
     Dosage: 1 DF, QD
     Route: 065
     Dates: start: 201803, end: 201804
  11. NOVORAPID [Concomitant]
     Active Substance: INSULIN ASPART
     Indication: PRODUCT USED FOR UNKNOWN INDICATION
     Dosage: 1 DF, UNK
     Route: 065
     Dates: end: 20180419
  12. DOBUTREX [Concomitant]
     Active Substance: DOBUTAMINE HYDROCHLORIDE
     Indication: PRODUCT USED FOR UNKNOWN INDICATION
     Dosage: 1 DF, QD
     Route: 065
     Dates: start: 20180418, end: 20180419
  13. WELLVONE [Suspect]
     Active Substance: ATOVAQUONE
     Indication: PNEUMOCYSTIS JIROVECII INFECTION
     Dosage: 750 MG, TID
     Route: 048
     Dates: start: 20180413, end: 20180419
  14. BACTRIM [Suspect]
     Active Substance: SULFAMETHOXAZOLE\TRIMETHOPRIM
     Dosage: 5.5 DF, TID
     Route: 051
     Dates: start: 20180409, end: 20180413
  15. ELIQUIS [Concomitant]
     Active Substance: APIXABAN
     Indication: PRODUCT USED FOR UNKNOWN INDICATION
     Dosage: 5 MG, BID
     Route: 048
     Dates: start: 201802, end: 20180417
  16. CORDARONE [Concomitant]
     Active Substance: AMIODARONE HYDROCHLORIDE
     Indication: PRODUCT USED FOR UNKNOWN INDICATION
     Dosage: 200 MG, QD
     Route: 065
     Dates: start: 201803, end: 201804
  17. DISOPRIVAN [Concomitant]
     Active Substance: PROPOFOL
     Indication: PRODUCT USED FOR UNKNOWN INDICATION
     Dosage: 1 DF, QD
     Route: 051
     Dates: start: 20180407, end: 20180419
  18. NEOSYNEPHRINE [Concomitant]
     Active Substance: PHENYLEPHRINE HYDROCHLORIDE
     Indication: PRODUCT USED FOR UNKNOWN INDICATION
     Dosage: 1 DF, QD
     Route: 065
     Dates: start: 201804, end: 20180418
  19. VITARUBIN [Concomitant]
     Active Substance: CYANOCOBALAMIN
     Indication: PRODUCT USED FOR UNKNOWN INDICATION
     Dosage: 1000 ?G, UNK
     Route: 065
     Dates: start: 20180412
  20. TOREM [Concomitant]
     Active Substance: TORSEMIDE
     Indication: PRODUCT USED FOR UNKNOWN INDICATION
     Dosage: 10 MG, TID
     Route: 065
     Dates: start: 201803, end: 20180405
  21. LASIX [Concomitant]
     Active Substance: FUROSEMIDE
     Indication: PRODUCT USED FOR UNKNOWN INDICATION
     Dosage: 1 DF, UNK
     Route: 065
     Dates: start: 20180405, end: 20180408
  22. SINTENYL [Concomitant]
     Active Substance: FENTANYL CITRATE
     Indication: PRODUCT USED FOR UNKNOWN INDICATION
     Dosage: 1 DF, QD
     Route: 065
     Dates: start: 20180407, end: 20180419
  23. SOLU-MEDROL [Suspect]
     Active Substance: METHYLPREDNISOLONE SODIUM SUCCINATE
     Indication: ALVEOLITIS ALLERGIC
     Dosage: 1 DF, BID
     Route: 051
     Dates: start: 20180409, end: 20180418
  24. MORPHINE [Concomitant]
     Active Substance: MORPHINE
     Indication: PRODUCT USED FOR UNKNOWN INDICATION
     Dosage: 1 DF, UNK
     Route: 065
     Dates: start: 20180419, end: 20180419
  25. CORDARONE (AMIODARONE) [Concomitant]
     Indication: PRODUCT USED FOR UNKNOWN INDICATION
     Dosage: 150 MG, BID
     Route: 065
     Dates: start: 201804, end: 20180418

REACTIONS (34)
  - Pyrexia [None]
  - Myocardial strain [None]
  - Atrial flutter [None]
  - Cerebral vasoconstriction [Fatal]
  - Brain oedema [None]
  - Sputum discoloured [None]
  - Asthenia [None]
  - Wrong drug administered [None]
  - Bronchiectasis [None]
  - Acute respiratory distress syndrome [None]
  - Ejection fraction decreased [None]
  - Haemodynamic instability [None]
  - Hyperkalaemia [Unknown]
  - Ventricular tachycardia [None]
  - Subarachnoid haemorrhage [None]
  - Decreased appetite [None]
  - Cerebral ischaemia [None]
  - Glucose tolerance impaired [None]
  - Acute kidney injury [Recovered/Resolved]
  - Hypernatraemia [Unknown]
  - Pneumocystis jirovecii infection [Unknown]
  - Pneumocystis jirovecii pneumonia [None]
  - Disease recurrence [None]
  - Haemolysis [Unknown]
  - Medication error [Fatal]
  - Alveolitis allergic [None]
  - Glucose-6-phosphate dehydrogenase deficiency [None]
  - Pulseless electrical activity [None]
  - Cerebral haemorrhage [Fatal]
  - Blood pressure increased [Fatal]
  - Pyruvate kinase decreased [None]
  - Haemoglobin decreased [None]
  - Hypertension [None]
  - Embolism [None]

NARRATIVE: CASE EVENT DATE: 201804
